FAERS Safety Report 6576973-8 (Version None)
Quarter: 2010Q1

REPORT INFORMATION
  Report Type: 
  Country: None (occurrence: None)
  Receive Date: 20100210
  Receipt Date: 20100126
  Transmission Date: 20100710
  Serious: Yes (Hospitalization, Other)
  Sender: FDA-Public Use
  Company Number: JP-PFIZER INC-2010017562

PATIENT
  Age: 31 Year
  Sex: Female
  Weight: 67 kg

DRUGS (2)
  1. CYTOTEC [Suspect]
     Indication: PROCEDURAL PAIN
     Dosage: 200 MG, 1X/DAY
     Route: 048
     Dates: start: 20100121, end: 20100121
  2. LOXONIN [Concomitant]
     Indication: PROCEDURAL PAIN
     Dosage: 60 MG, 1X/DAY
     Route: 048
     Dates: start: 20100121, end: 20100121

REACTIONS (1)
  - CONVULSION [None]
